FAERS Safety Report 8738190 (Version 2)
Quarter: 2013Q4

REPORT INFORMATION
  Report Type: Spontaneous
  Country: US (occurrence: US)
  Receive Date: 20120823
  Receipt Date: 20131106
  Transmission Date: 20140711
  Serious: Yes (Hospitalization)
  Sender: FDA-Public Use
  Company Number: US-009507513-1208USA005866

PATIENT
  Sex: 0

DRUGS (1)
  1. INTEGRILIN [Suspect]
     Dosage: UNK
     Dates: end: 20120810

REACTIONS (1)
  - Coronary artery disease [Not Recovered/Not Resolved]
